FAERS Safety Report 12390977 (Version 1)
Quarter: 2016Q2

REPORT INFORMATION
  Report Type: Spontaneous
  Country: US (occurrence: US)
  Receive Date: 20160520
  Receipt Date: 20160520
  Transmission Date: 20160815
  Serious: Yes (Death, Other)
  Sender: FDA-Public Use
  Company Number: US-PFIZER INC-2016262605

PATIENT

DRUGS (1)
  1. INDOMETHACIN. [Suspect]
     Active Substance: INDOMETHACIN
     Dosage: 30 TO 40 CAPSULES

REACTIONS (5)
  - Vomiting [Unknown]
  - Overdose [Fatal]
  - Somnolence [Unknown]
  - Brain oedema [Fatal]
  - Respiratory arrest [Fatal]
